FAERS Safety Report 15617780 (Version 4)
Quarter: 2018Q4

REPORT INFORMATION
  Report Type: Spontaneous
  Country: JP (occurrence: JP)
  Receive Date: 20181114
  Receipt Date: 20181205
  Transmission Date: 20190205
  Serious: Yes (Other)
  Sender: FDA-Public Use
  Company Number: JP-ALLERGAN-1853277US

PATIENT
  Age: 76 Year
  Sex: Male

DRUGS (2)
  1. BOTOX [Suspect]
     Active Substance: ONABOTULINUMTOXINA
     Indication: MUSCLE SPASMS
     Dosage: 200 IU, SINGLE
     Route: 030
     Dates: start: 20181126, end: 20181126
  2. BOTOX [Suspect]
     Active Substance: ONABOTULINUMTOXINA
     Dosage: 300 IU, SINGLE
     Route: 030
     Dates: start: 20180723, end: 20180723

REACTIONS (4)
  - Ascites [Not Recovered/Not Resolved]
  - Sepsis [Recovered/Resolved]
  - Platelet count decreased [Not Recovered/Not Resolved]
  - Malignant ascites [Recovered/Resolved]

NARRATIVE: CASE EVENT DATE: 2018
